FAERS Safety Report 19783453 (Version 3)
Quarter: 2021Q3

REPORT INFORMATION
  Report Type: Spontaneous
  Country: JP (occurrence: JP)
  Receive Date: 20210902
  Receipt Date: 20210928
  Transmission Date: 20211014
  Serious: Yes (Death, Other)
  Sender: FDA-Public Use
  Company Number: JP-TAKEDA-2021TJP080037

PATIENT
  Age: 3 Year
  Sex: Male
  Weight: 5 kg

DRUGS (10)
  1. GABEXATE MESILATE [Concomitant]
     Active Substance: GABEXATE MESYLATE
     Indication: PANCREATITIS ACUTE
     Dosage: 10 MILLIGRAM, QD
     Route: 041
     Dates: start: 20210821, end: 20210826
  2. ENTYVIO [Suspect]
     Active Substance: VEDOLIZUMAB
     Indication: INFLAMMATORY BOWEL DISEASE
     Dosage: 50 MILLIGRAM
     Route: 041
     Dates: start: 20210804, end: 20210824
  3. PREDONINE [Suspect]
     Active Substance: PREDNISOLONE
     Indication: INFLAMMATORY BOWEL DISEASE
     Dosage: 2.5 MILLIGRAM, BID
     Route: 042
     Dates: start: 20210330, end: 20210504
  4. LASIX [Concomitant]
     Active Substance: FUROSEMIDE
     Indication: CARDIAC FAILURE
     Dosage: 1 MILLIGRAM, QD
     Route: 042
     Dates: start: 20210402, end: 20210908
  5. ASELEND [Concomitant]
     Indication: MINERAL SUPPLEMENTATION
     Dosage: 25 MICROGRAM, QD
     Route: 042
     Dates: start: 20210401, end: 20210908
  6. LASIX [Concomitant]
     Active Substance: FUROSEMIDE
     Indication: OEDEMA
  7. NEOPHAGEN [Concomitant]
     Active Substance: GLYCYRRHIZIN
     Indication: HEPATIC FUNCTION ABNORMAL
     Dosage: 10 MILLIGRAM, QD
     Route: 042
     Dates: start: 20210826, end: 20210908
  8. PREDONINE [Suspect]
     Active Substance: PREDNISOLONE
     Indication: ADRENAL INSUFFICIENCY
     Dosage: 1 MILLIGRAM
     Route: 042
     Dates: start: 20210505, end: 20210908
  9. BISOLVON [Concomitant]
     Active Substance: BROMHEXINE HYDROCHLORIDE
     Indication: PANCREATOLITHIASIS
     Dosage: 1 MILLIGRAM, QD
     Route: 042
     Dates: start: 20210721, end: 20210908
  10. GASTER [Concomitant]
     Active Substance: FAMOTIDINE
     Indication: PROPHYLAXIS
     Dosage: 5 MILLIGRAM, BID
     Route: 042
     Dates: start: 20210330, end: 20210908

REACTIONS (4)
  - Vascular device infection [Recovered/Resolved]
  - Off label use [Unknown]
  - Pneumonia [Fatal]
  - Product administered to patient of inappropriate age [Unknown]

NARRATIVE: CASE EVENT DATE: 20210804
